FAERS Safety Report 9787007 (Version 3)
Quarter: 2014Q1

REPORT INFORMATION
  Report Type: Spontaneous
  Country: FR (occurrence: FR)
  Receive Date: 20131227
  Receipt Date: 20140106
  Transmission Date: 20141002
  Serious: Yes (Death)
  Sender: FDA-Public Use
  Company Number: PHHY2013FR152313

PATIENT
  Age: 57 Year
  Sex: Female

DRUGS (7)
  1. METHOTREXATE SANDOZ [Suspect]
     Indication: CHEMOTHERAPY
     Dosage: 15 MG, UNK
     Route: 042
     Dates: start: 20100305, end: 20100305
  2. ARACYTINE [Suspect]
     Indication: CHEMOTHERAPY
     Route: 042
     Dates: start: 20100305, end: 20100305
  3. VINCRISTINE PAULDING [Suspect]
     Indication: CHEMOTHERAPY
     Dosage: 2 MG, UNK
     Route: 042
     Dates: start: 20100305, end: 20100305
  4. CERUBIDINE [Suspect]
     Indication: CHEMOTHERAPY
     Route: 042
     Dates: start: 20100305, end: 20100308
  5. ENDOXAN ASTA [Suspect]
     Indication: CHEMOTHERAPY
     Route: 042
     Dates: start: 20100305, end: 20100305
  6. KIDROLASE [Concomitant]
     Dates: start: 20100305
  7. METHYLPREDNISOLONE MERCK [Concomitant]
     Indication: CHEMOTHERAPY
     Dates: start: 20100305

REACTIONS (4)
  - Hepatic failure [Fatal]
  - Renal failure [Fatal]
  - Renal failure acute [Fatal]
  - Hepatic encephalopathy [Fatal]
